FAERS Safety Report 8514896-5 (Version None)
Quarter: 2012Q3

REPORT INFORMATION
  Report Type: 
  Country: None (occurrence: None)
  Receive Date: 20120717
  Receipt Date: 20120711
  Transmission Date: 20120928
  Serious: No
  Sender: FDA-Public Use
  Company Number: US-PFIZER INC-2012040101

PATIENT
  Sex: Female

DRUGS (4)
  1. TOVIAZ [Suspect]
     Indication: HYPERTONIC BLADDER
     Dosage: 4 MG, 1X/DAY
     Route: 048
     Dates: start: 20120101, end: 20120201
  2. LASIX [Suspect]
     Indication: CARDIAC DISORDER
     Dosage: 40 MG, 1X/DAY
     Route: 048
     Dates: start: 20110301
  3. NEXIUM [Concomitant]
     Dosage: UNK
  4. TOVIAZ [Suspect]
     Dosage: 8 MG, 1X/DAY
     Route: 048
     Dates: start: 20120201

REACTIONS (7)
  - FALL [None]
  - DRY SKIN [None]
  - DRY MOUTH [None]
  - SWELLING [None]
  - DRY EYE [None]
  - OEDEMA [None]
  - NERVOUSNESS [None]
